FAERS Safety Report 4537695-8 (Version None)
Quarter: 2004Q4

REPORT INFORMATION
  Report Type: 
  Country: None (occurrence: None)
  Receive Date: 20041216
  Receipt Date: 20040923
  Transmission Date: 20050328
  Serious: Yes (Other)
  Sender: FDA-Public Use
  Company Number: HQWYE174823SEP04

PATIENT
  Age: 75 Year
  Sex: Male
  Weight: 81.72 kg

DRUGS (6)
  1. EFFEXOR XR [Suspect]
     Indication: ANXIETY
     Dosage: 150 MG 1X PER 1 DAY, ORAL
     Route: 048
     Dates: start: 20040101
  2. EFFEXOR XR [Suspect]
     Indication: POST-TRAUMATIC STRESS DISORDER
     Dosage: 150 MG 1X PER 1 DAY, ORAL
     Route: 048
     Dates: start: 20040101
  3. UNSPECIFIED ANESTHETIC (UNSPECIFIED ANESTHETIC) [Concomitant]
  4. KEFLEX [Concomitant]
  5. BACTRIM [Concomitant]
  6. MORPHINE SULFATE [Concomitant]

REACTIONS (6)
  - BLOOD CREATININE INCREASED [None]
  - DIZZINESS [None]
  - DYSPHONIA [None]
  - HOT FLUSH [None]
  - LETHARGY [None]
  - SOMNOLENCE [None]
